FAERS Safety Report 18338997 (Version 2)
Quarter: 2020Q4

REPORT INFORMATION
  Report Type: Report from Study
  Country: US (occurrence: US)
  Receive Date: 20201002
  Receipt Date: 20201204
  Transmission Date: 20210113
  Serious: Yes (Death, Life-Threatening, Congenital Anomaly, Other)
  Sender: FDA-Public Use
  Company Number: US-PRINSTON PHARMACEUTICAL INC.-2020PRN00335

PATIENT
  Age: 0 Year
  Sex: Male
  Weight: .45 kg

DRUGS (13)
  1. TYLENOL [Concomitant]
     Active Substance: ACETAMINOPHEN
  2. PROGRAF [Concomitant]
     Active Substance: TACROLIMUS
  3. SODIUM BICARBONATE. [Concomitant]
     Active Substance: SODIUM BICARBONATE
  4. COLACE [Concomitant]
     Active Substance: DOCUSATE SODIUM
  5. ASPIRIN. [Concomitant]
     Active Substance: ASPIRIN
  6. TRANDATE [Concomitant]
     Active Substance: LABETALOL HYDROCHLORIDE
  7. CELESTONE [Concomitant]
     Active Substance: BETAMETHASONE
  8. FOLIC ACID. [Concomitant]
     Active Substance: FOLIC ACID
  9. SPARSENTAN. [Suspect]
     Active Substance: SPARSENTAN
     Dosage: 800 MG, 1X/DAY
     Route: 064
     Dates: start: 202002, end: 20200410
  10. LASIX [Concomitant]
     Active Substance: FUROSEMIDE
  11. PRENATAL GUMMIES/MULTIVITAMIN [Concomitant]
  12. APRESOLINE HYDROCHLORIDE [Concomitant]
     Active Substance: HYDRALAZINE HYDROCHLORIDE
  13. IRBESARTAN. [Suspect]
     Active Substance: IRBESARTAN
     Dosage: 300 MG, 1X/DAY
     Route: 064
     Dates: start: 202002, end: 20200410

REACTIONS (15)
  - Premature baby [Fatal]
  - Apgar score low [Unknown]
  - Seizure [Unknown]
  - Hypotension [Unknown]
  - Selective eating disorder [Unknown]
  - Gastric perforation [Unknown]
  - Neonatal respiratory distress syndrome [Unknown]
  - Intestinal perforation [Fatal]
  - Respiratory failure [Unknown]
  - Intraventricular haemorrhage neonatal [Fatal]
  - Foetal growth restriction [Unknown]
  - Pancytopenia [Unknown]
  - Neutropenia neonatal [Unknown]
  - Lactic acidosis [Unknown]
  - Foetal exposure during pregnancy [Recovered/Resolved]

NARRATIVE: CASE EVENT DATE: 202002
